FAERS Safety Report 5193196-8 (Version None)
Quarter: 2006Q4

REPORT INFORMATION
  Report Type: 
  Country: None (occurrence: None)
  Receive Date: 20061221
  Receipt Date: 20061208
  Transmission Date: 20070319
  Serious: Yes (Death)
  Sender: FDA-Public Use
  Company Number: 2006JP004910

PATIENT
  Age: 6 Year
  Sex: Male

DRUGS (5)
  1. PROGRAF [Suspect]
     Indication: BONE MARROW TRANSPLANT
  2. METHOTREXATE [Concomitant]
  3. CYCLOPHOSPHOMIDE (CYCLOPHOSPHOMIDE) [Concomitant]
  4. BUSULFAN (BUSULFAN) [Concomitant]
  5. FLUDARA [Concomitant]

REACTIONS (2)
  - COMPLICATIONS OF BONE MARROW TRANSPLANT [None]
  - LYMPHOPROLIFERATIVE DISORDER [None]
